FAERS Safety Report 9471019 (Version 1)
Quarter: 2013Q3

REPORT INFORMATION
  Report Type: Spontaneous
  Country: JP (occurrence: None)
  Receive Date: 20130816
  Receipt Date: 20130816
  Transmission Date: 20140515
  Serious: Yes (Other)
  Sender: FDA-Public Use
  Company Number: 2013P1016735

PATIENT
  Age: 24 Year
  Sex: Female

DRUGS (1)
  1. AMOXICILLIN [Suspect]
     Indication: SYPHILIS
     Route: 048

REACTIONS (5)
  - Anterior chamber cell [None]
  - Vitreous haemorrhage [None]
  - Retinal neovascularisation [None]
  - Jarisch-Herxheimer reaction [None]
  - Eye inflammation [None]
